FAERS Safety Report 24422616 (Version 1)
Quarter: 2024Q4

REPORT INFORMATION
  Report Type: Spontaneous
  Country: US (occurrence: None)
  Receive Date: 20241009
  Receipt Date: 20241009
  Transmission Date: 20250115
  Serious: No
  Sender: Public
  Company Number: None

PATIENT
  Age: 60 Year
  Sex: Male

DRUGS (3)
  1. PREGABALIN [Suspect]
     Active Substance: PREGABALIN
     Indication: Pain
     Dates: start: 20230628, end: 20240609
  2. TRAMADOL [Suspect]
     Active Substance: TRAMADOL
  3. CYCLOBENZAPRINE [Suspect]
     Active Substance: CYCLOBENZAPRINE

REACTIONS (7)
  - Confusional state [None]
  - Dyskinesia [None]
  - Fall [None]
  - Head injury [None]
  - Wrong dose [None]
  - Speech disorder [None]
  - Toxicity to various agents [None]

NARRATIVE: CASE EVENT DATE: 20240609
